FAERS Safety Report 22835539 (Version 2)
Quarter: 2023Q4

REPORT INFORMATION
  Report Type: Spontaneous
  Country: US (occurrence: US)
  Receive Date: 20230818
  Receipt Date: 20231115
  Transmission Date: 20240109
  Serious: Yes (Hospitalization, Other)
  Sender: FDA-Public Use
  Company Number: US-MLMSERVICE-20230728-4439103-1

PATIENT
  Age: 80 Year
  Sex: Female

DRUGS (1)
  1. VALACYCLOVIR HYDROCHLORIDE [Suspect]
     Active Substance: VALACYCLOVIR HYDROCHLORIDE
     Indication: Herpes zoster
     Dosage: 1000 MILLIGRAM, 3 TIMES A DAY
     Route: 065

REACTIONS (3)
  - Catatonia [Recovered/Resolved]
  - Delirium [Recovered/Resolved]
  - Incorrect dose administered [Recovered/Resolved]
